FAERS Safety Report 5888950-0 (Version None)
Quarter: 2008Q3

REPORT INFORMATION
  Report Type: 
  Country: None (occurrence: None)
  Receive Date: 20080918
  Receipt Date: 20080918
  Transmission Date: 20090109
  Serious: Yes (Death, Hospitalization)
  Sender: FDA-Public Use
  Company Number: None

PATIENT
  Sex: Male
  Weight: 79.36 kg

DRUGS (2)
  1. FLUOROURACIL [Suspect]
     Dosage: 12470 MG
     Dates: end: 20080630
  2. ELOXATIN [Suspect]
     Dosage: 480 MG

REACTIONS (9)
  - ABDOMINAL DISTENSION [None]
  - GASTROINTESTINAL DISORDER POSTOPERATIVE [None]
  - GASTROINTESTINAL HYPOMOTILITY [None]
  - GASTROINTESTINAL INJURY [None]
  - GASTROINTESTINAL ISCHAEMIA [None]
  - GASTROINTESTINAL NECROSIS [None]
  - PNEUMATOSIS [None]
  - POSTOPERATIVE ILEUS [None]
  - SURGERY [None]
